FAERS Safety Report 7689241-8 (Version None)
Quarter: 2011Q3

REPORT INFORMATION
  Report Type: 
  Country: None (occurrence: None)
  Receive Date: 20110811
  Receipt Date: 20110726
  Transmission Date: 20111222
  Serious: Yes (Hospitalization, Other)
  Sender: FDA-Public Use
  Company Number: 2011AP001528

PATIENT
  Age: 67 Year
  Sex: Female

DRUGS (8)
  1. HYDROCHLOROTHIAZIDE [Concomitant]
  2. PAROXETINE HYDROCHLORIDE [Suspect]
     Indication: DEPRESSION
  3. CLONAZEPAM [Concomitant]
  4. LISINOPRIL [Concomitant]
  5. DULOXETIME HYDROCHLORIDE [Concomitant]
  6. ROSUVASTATIN [Concomitant]
  7. RISPERIDONE [Suspect]
     Indication: PSYCHOTIC DISORDER
     Dosage: 0.5 MG;QD; 0.5 MG;BID
  8. ESCITALOPRAM [Suspect]
     Indication: DEPRESSION

REACTIONS (14)
  - DECREASED APPETITE [None]
  - DRUG INEFFECTIVE [None]
  - BRADYKINESIA [None]
  - GAIT DISTURBANCE [None]
  - INSOMNIA [None]
  - SUICIDAL IDEATION [None]
  - PARKINSONISM [None]
  - CONDITION AGGRAVATED [None]
  - FAMILY STRESS [None]
  - ANHEDONIA [None]
  - MAJOR DEPRESSION [None]
  - DEPRESSED MOOD [None]
  - SOMATIC DELUSION [None]
  - FLAT AFFECT [None]
